FAERS Safety Report 21803452 (Version 3)
Quarter: 2025Q1

REPORT INFORMATION
  Report Type: Report from Study
  Country: US (occurrence: US)
  Receive Date: 20230101
  Receipt Date: 20250119
  Transmission Date: 20250408
  Serious: No
  Sender: ABBVIE
  Company Number: US-ABBVIE-4222580

PATIENT
  Sex: Female

DRUGS (1)
  1. HUMIRA [Suspect]
     Active Substance: ADALIMUMAB
     Indication: Psoriasis
     Route: 058
     Dates: start: 20210106, end: 20230105

REACTIONS (3)
  - Therapeutic product effect decreased [Not Recovered/Not Resolved]
  - Drug specific antibody present [Unknown]
  - Psoriasis [Unknown]
